FAERS Safety Report 4959192-8 (Version None)
Quarter: 2006Q1

REPORT INFORMATION
  Report Type: 
  Country: None (occurrence: None)
  Receive Date: 20060127
  Receipt Date: 20041214
  Transmission Date: 20060701
  Serious: Yes (Other)
  Sender: FDA-Public Use
  Company Number: 04-11-1599

PATIENT
  Age: 27 Year
  Sex: Female

DRUGS (15)
  1. CLOZAPINE [Suspect]
     Dosage: 400MG QD, ORAL
     Route: 048
     Dates: start: 20000701, end: 20041105
  2. LEVOTHYROXINE SODIUM [Concomitant]
  3. PANTOPRAZOLE SODIUM [Concomitant]
  4. LEVETIRACETAM [Concomitant]
  5. DESMOPRESSIN ACETATE [Concomitant]
  6. BUPROPION HCL [Concomitant]
  7. CLOMIPRAMINE HCL [Concomitant]
  8. HALOPERIDOL [Concomitant]
  9. DIVALPROEX SODIUM [Concomitant]
  10. TOLTERODINE TARTRATE [Concomitant]
  11. DIPHENHYDRAMINE HCL [Concomitant]
  12. NITROFURANTOIN [Concomitant]
  13. AZITHROMYCIN [Concomitant]
  14. DULOXETINE (DULOXETINE) [Concomitant]
  15. ZIPRASIDONE HCL [Concomitant]

REACTIONS (1)
  - NEUTROPENIA [None]
